FAERS Safety Report 26105041 (Version 1)
Quarter: 2025Q4

REPORT INFORMATION
  Report Type: Spontaneous
  Country: US (occurrence: US)
  Receive Date: 20251130
  Receipt Date: 20251130
  Transmission Date: 20260117
  Serious: No
  Sender: ALKEM
  Company Number: None

PATIENT
  Age: 60 Year
  Sex: Female

DRUGS (9)
  1. MYCOPHENOLATE MOFETIL [Suspect]
     Active Substance: MYCOPHENOLATE MOFETIL
     Indication: Pemphigus
     Dosage: 2000 MILLIGRAM, QD
     Route: 065
     Dates: start: 2010
  2. MYCOPHENOLATE MOFETIL [Suspect]
     Active Substance: MYCOPHENOLATE MOFETIL
     Indication: Ocular pemphigoid
     Dosage: UNK (TAPERED DOSE)
     Route: 065
     Dates: start: 201402
  3. MYCOPHENOLATE MOFETIL [Suspect]
     Active Substance: MYCOPHENOLATE MOFETIL
     Dosage: 3000 MILLIGRAM, QD
     Route: 065
     Dates: start: 201609
  4. MYCOPHENOLATE MOFETIL [Suspect]
     Active Substance: MYCOPHENOLATE MOFETIL
     Dosage: 1000 MILLIGRAM
     Route: 065
     Dates: start: 202308
  5. MYCOPHENOLATE MOFETIL [Suspect]
     Active Substance: MYCOPHENOLATE MOFETIL
     Dosage: 2500 MILLIGRAM (RESTARTED DOSE)
     Route: 065
     Dates: start: 202308
  6. MYCOPHENOLATE MOFETIL [Suspect]
     Active Substance: MYCOPHENOLATE MOFETIL
     Dosage: 1500 MILLIGRAM, BID
     Route: 065
     Dates: start: 202311
  7. MYCOPHENOLATE MOFETIL [Suspect]
     Active Substance: MYCOPHENOLATE MOFETIL
     Dosage: 1080 MILLIGRAM, BID
     Route: 065
     Dates: start: 202401
  8. CHONDROITIN [Concomitant]
     Active Substance: CHONDROITIN
     Indication: Conjunctivitis allergic
     Dosage: UNK
     Route: 065
     Dates: start: 2023
  9. MONTELUKAST [Concomitant]
     Active Substance: MONTELUKAST
     Indication: Conjunctivitis allergic
     Dosage: 10 MILLIGRAM, QD
     Route: 065
     Dates: start: 2023

REACTIONS (2)
  - Gastrointestinal disorder [Unknown]
  - Therapy partial responder [Unknown]

NARRATIVE: CASE EVENT DATE: 20240101
